FAERS Safety Report 5414072-9 (Version None)
Quarter: 2007Q3

REPORT INFORMATION
  Report Type: 
  Country: None (occurrence: None)
  Receive Date: 20070814
  Receipt Date: 20070802
  Transmission Date: 20080115
  Serious: Yes (Other)
  Sender: FDA-Public Use
  Company Number: GB-SANOFI-SYNTHELABO-A01200708580

PATIENT
  Sex: Female

DRUGS (1)
  1. DANOL [Suspect]
     Indication: PRECOCIOUS PUBERTY
     Dosage: UNK
     Route: 048

REACTIONS (4)
  - BENIGN LARYNGEAL NEOPLASM [None]
  - DYSPHONIA [None]
  - OFF LABEL USE [None]
  - PHARYNGITIS [None]
